FAERS Safety Report 4861216-3 (Version None)
Quarter: 2005Q4

REPORT INFORMATION
  Report Type: 
  Country: None (occurrence: None)
  Receive Date: 20051220
  Receipt Date: 20051209
  Transmission Date: 20060501
  Serious: Yes (Other)
  Sender: FDA-Public Use
  Company Number: CA-BRISTOL-MYERS SQUIBB COMPANY-13217419

PATIENT
  Age: 87 Year
  Sex: Female

DRUGS (12)
  1. TEQUIN [Suspect]
     Route: 048
  2. AMLODIPINE [Concomitant]
     Route: 048
  3. ASPIRIN [Concomitant]
  4. AMOXICILLIN AND CLAVULANATE POTASSIUM [Concomitant]
     Route: 048
  5. FUROSEMIDE [Concomitant]
     Route: 048
  6. GLYBURIDE [Concomitant]
     Route: 048
  7. IPRATROPIUM BROMIDE [Concomitant]
     Route: 055
  8. PERCOCET [Concomitant]
     Route: 048
  9. PREDNISONE TAB [Concomitant]
     Route: 048
  10. RANITIDINE [Concomitant]
     Route: 048
  11. SYMBICORT [Concomitant]
  12. VIOXX [Concomitant]
     Route: 048

REACTIONS (1)
  - HYPOGLYCAEMIA [None]
